FAERS Safety Report 15736978 (Version 2)
Quarter: 2019Q1

REPORT INFORMATION
  Report Type: Report from Study
  Country: ZA (occurrence: ZA)
  Receive Date: 20181218
  Receipt Date: 20190211
  Transmission Date: 20190417
  Serious: Yes (Congenital Anomaly, Other)
  Sender: FDA-Public Use
  Company Number: ZA-MYLANLABS-2018M1094191

PATIENT
  Sex: Male
  Weight: 3.66 kg

DRUGS (3)
  1. EFAVIRENZ/EMTRICITABINE/TENOFOVIR DISOPROXIL FUMARATE [Suspect]
     Active Substance: EFAVIRENZ\EMTRICITABINE\TENOFOVIR DISOPROXIL FUMARATE
     Indication: PRODUCT USED FOR UNKNOWN INDICATION
     Dosage: 1 DOSAGE FORM, QD
     Route: 064
     Dates: start: 20180320
  2. FOLATE [Concomitant]
     Active Substance: FOLATE SODIUM
     Dosage: UNK
  3. IRON SULFATE [Concomitant]
     Active Substance: FERROUS SULFATE ANHYDROUS
     Dosage: UNK

REACTIONS (3)
  - Congenital umbilical hernia [Unknown]
  - Cleft palate [Unknown]
  - Foetal exposure during pregnancy [Recovered/Resolved]
